FAERS Safety Report 6084931-5 (Version None)
Quarter: 2009Q1

REPORT INFORMATION
  Report Type: 
  Country: None (occurrence: None)
  Receive Date: 20090220
  Receipt Date: 20090210
  Transmission Date: 20090719
  Serious: Yes (Other)
  Sender: FDA-Public Use
  Company Number: US-JNJFOC-20081005044

PATIENT
  Sex: Female
  Weight: 57.61 kg

DRUGS (4)
  1. DOXORUBICIN HCL [Suspect]
     Dosage: INFUSION 6
     Route: 042
  2. DOXORUBICIN HCL [Suspect]
     Route: 042
  3. DOXORUBICIN HCL [Suspect]
     Route: 042
  4. DOXORUBICIN HCL [Suspect]
     Indication: OVARIAN CANCER
     Route: 042

REACTIONS (3)
  - BLISTER [None]
  - RASH [None]
  - TUMOUR MARKER INCREASED [None]
